FAERS Safety Report 12519318 (Version 1)
Quarter: 2016Q2

REPORT INFORMATION
  Report Type: Spontaneous
  Country: CA (occurrence: CA)
  Receive Date: 20160630
  Receipt Date: 20160630
  Transmission Date: 20160815
  Serious: Yes (Other)
  Sender: FDA-Public Use
  Company Number: CA-WARNER CHILCOTT, LLC-1054445

PATIENT
  Age: 45 Year
  Sex: Female

DRUGS (26)
  1. ZOPICLONE [Concomitant]
     Active Substance: ZOPICLONE
  2. AZATHIOPRINE. [Concomitant]
     Active Substance: AZATHIOPRINE
  3. LIPIDIL [Concomitant]
     Active Substance: FENOFIBRATE
  4. RANITIDINE. [Concomitant]
     Active Substance: RANITIDINE
  5. WELLBUTRIN [Concomitant]
     Active Substance: BUPROPION HYDROCHLORIDE
  6. SYMBICORT [Concomitant]
     Active Substance: BUDESONIDE\FORMOTEROL FUMARATE DIHYDRATE
  7. CITALOPRAM HYDROBROMIDE. [Suspect]
     Active Substance: CITALOPRAM HYDROBROMIDE
  8. BENADRYL [Concomitant]
     Active Substance: DIPHENHYDRAMINE HYDROCHLORIDE
  9. MOBICOX [Concomitant]
     Active Substance: MELOXICAM
  10. ASA [Concomitant]
     Active Substance: ASPIRIN
  11. CELLCEPT [Concomitant]
     Active Substance: MYCOPHENOLATE MOFETIL\MYCOPHENOLATE MOFETIL HYDROCHLORIDE
  12. DESMOPRESSIN [Concomitant]
     Active Substance: DESMOPRESSIN
  13. DESVENLAFAXINE SUCCINATE [Concomitant]
     Active Substance: DESVENLAFAXINE SUCCINATE
  14. NAPROXEN. [Concomitant]
     Active Substance: NAPROXEN
  15. NEXIUM [Concomitant]
     Active Substance: ESOMEPRAZOLE MAGNESIUM
  16. TYLENOL [Concomitant]
     Active Substance: ACETAMINOPHEN
  17. CELEBREX [Suspect]
     Active Substance: CELECOXIB
  18. GENOTROPIN [Concomitant]
     Active Substance: SOMATROPIN
  19. HUMALOG [Concomitant]
     Active Substance: INSULIN LISPRO
  20. HUMULIN N [Concomitant]
     Active Substance: INSULIN HUMAN
  21. METHYLPREDNISOLONE SODIUM SUCCINATE. [Concomitant]
     Active Substance: METHYLPREDNISOLONE SODIUM SUCCINATE
  22. PREDNISONE. [Concomitant]
     Active Substance: PREDNISONE
  23. ACLASTA [Concomitant]
     Active Substance: ZOLEDRONIC ACID
  24. LEVOTHYROXINE. [Concomitant]
     Active Substance: LEVOTHYROXINE
  25. ACTONEL [Suspect]
     Active Substance: RISEDRONATE SODIUM
  26. RITUXAN [Suspect]
     Active Substance: RITUXIMAB
     Route: 042

REACTIONS (7)
  - Drug ineffective [Not Recovered/Not Resolved]
  - Vasculitis [Not Recovered/Not Resolved]
  - Arthralgia [Not Recovered/Not Resolved]
  - Rib fracture [Not Recovered/Not Resolved]
  - Infusion related reaction [Not Recovered/Not Resolved]
  - Peripheral swelling [Not Recovered/Not Resolved]
  - Joint swelling [Not Recovered/Not Resolved]
